FAERS Safety Report 17766269 (Version 1)
Quarter: 2020Q2

REPORT INFORMATION
  Report Type: Spontaneous
  Country: US (occurrence: US)
  Receive Date: 20200511
  Receipt Date: 20200511
  Transmission Date: 20200714
  Serious: No
  Sender: FDA-Public Use
  Company Number: None

PATIENT
  Age: 63 Year
  Sex: Male

DRUGS (2)
  1. VANCOMYCIN (VANCOMYCIN HCL 1.5GM/VIL INJ) [Suspect]
     Active Substance: VANCOMYCIN
     Indication: CELLULITIS
     Dates: start: 20190903, end: 20190904
  2. PIPERACILLIN/TAZOBACTAM (PIPERACILLIN NA 4GM/TAZOBACTAM 0.5GM/VIL INJ) [Suspect]
     Active Substance: PIPERACILLIN SODIUM\TAZOBACTAM SODIUM
     Indication: CELLULITIS
     Dates: start: 20190830, end: 20190904

REACTIONS (5)
  - Rash [None]
  - Pruritus [None]
  - Blood creatinine increased [None]
  - Blood urea increased [None]
  - Urticaria [None]

NARRATIVE: CASE EVENT DATE: 20190904
